FAERS Safety Report 5483069-5 (Version None)
Quarter: 2007Q4

REPORT INFORMATION
  Report Type: 
  Country: None (occurrence: None)
  Receive Date: 20071011
  Receipt Date: 20070927
  Transmission Date: 20080405
  Serious: Yes (Hospitalization)
  Sender: FDA-Public Use
  Company Number: JP-GENENTECH-249135

PATIENT
  Sex: Female
  Weight: 41.9 kg

DRUGS (11)
  1. BEVACIZUMAB [Suspect]
     Indication: NON-SMALL CELL LUNG CANCER
     Dosage: 629 MG, Q3W
     Route: 042
     Dates: start: 20070801
  2. PACLITAXEL [Suspect]
     Indication: NON-SMALL CELL LUNG CANCER
     Dosage: 272 MG, Q3W
     Route: 042
     Dates: start: 20070801
  3. CARBOPLATIN [Suspect]
     Indication: NON-SMALL CELL LUNG CANCER
     Dosage: 539 MG, Q3W
     Route: 042
     Dates: start: 20070801
  4. OXYCODONE HCL [Concomitant]
     Indication: DRUG USE FOR UNKNOWN INDICATION
  5. FENTANYL [Concomitant]
     Indication: DRUG USE FOR UNKNOWN INDICATION
  6. METOCLOPRAMIDE [Concomitant]
     Indication: DRUG USE FOR UNKNOWN INDICATION
  7. TRIAMCINOLONE [Concomitant]
     Indication: DRUG USE FOR UNKNOWN INDICATION
  8. PROCHLORPERAZINE [Concomitant]
     Indication: DRUG USE FOR UNKNOWN INDICATION
  9. LOXOPROFEN SODIUM [Concomitant]
     Indication: DRUG USE FOR UNKNOWN INDICATION
  10. TEPRENONE [Concomitant]
     Indication: DRUG USE FOR UNKNOWN INDICATION
  11. FLURBIPROFEN [Concomitant]
     Indication: DRUG USE FOR UNKNOWN INDICATION

REACTIONS (4)
  - C-REACTIVE PROTEIN INCREASED [None]
  - NEUTROPHIL PERCENTAGE DECREASED [None]
  - PYREXIA [None]
  - WHITE BLOOD CELL COUNT DECREASED [None]
